FAERS Safety Report 5125246-9 (Version None)
Quarter: 2006Q4

REPORT INFORMATION
  Report Type: 
  Country: None (occurrence: None)
  Receive Date: 20061006
  Receipt Date: 20060928
  Transmission Date: 20070319
  Serious: Yes (Hospitalization)
  Sender: FDA-Public Use
  Company Number: S06-USA-04006-01

PATIENT
  Age: 36 Year
  Sex: Male

DRUGS (8)
  1. CELEXA [Suspect]
     Indication: OBSESSIVE-COMPULSIVE DISORDER
     Dosage: 10 MG QD PO
     Route: 048
     Dates: start: 20060914, end: 20060915
  2. VALPROIC ACID [Suspect]
     Indication: PARTIAL SEIZURES
     Dosage: 750 MG QHS PO
     Route: 048
     Dates: start: 19940101, end: 20060101
  3. SEROQUEL [Concomitant]
  4. CLARINEX [Concomitant]
  5. NASONEX [Concomitant]
  6. LEVOTHYROXINE SODIUM [Concomitant]
  7. PRAVASTATIN [Concomitant]
  8. ATENOLOL [Concomitant]

REACTIONS (5)
  - ANTICONVULSANT DRUG LEVEL DECREASED [None]
  - CONVULSION [None]
  - DISTURBANCE IN ATTENTION [None]
  - DRUG INTERACTION [None]
  - FALL [None]
